FAERS Safety Report 23822727 (Version 2)
Quarter: 2025Q3

REPORT INFORMATION
  Report Type: Spontaneous
  Country: EU (occurrence: EU)
  Receive Date: 20240506
  Receipt Date: 20250820
  Transmission Date: 20251021
  Serious: Yes (Hospitalization)
  Sender: TEVA
  Company Number: None

PATIENT
  Age: 51 Year
  Sex: Female

DRUGS (10)
  1. DIAZEPAM [Interacting]
     Active Substance: DIAZEPAM
     Indication: Anxiety
     Route: 048
     Dates: end: 20240321
  2. DIAZEPAM [Interacting]
     Active Substance: DIAZEPAM
     Indication: Anxiety
     Route: 048
     Dates: end: 20240319
  3. TERALITHE [Interacting]
     Active Substance: LITHIUM CARBONATE
     Indication: Depression
     Route: 048
     Dates: end: 20240311
  4. MELATONIN [Concomitant]
     Active Substance: MELATONIN
     Indication: Product used for unknown indication
     Route: 048
  5. ACETAMINOPHEN [Concomitant]
     Active Substance: ACETAMINOPHEN
     Indication: Product used for unknown indication
     Route: 048
  6. POLYETHYLENE GLYCOLS [Concomitant]
     Active Substance: POLYETHYLENE GLYCOLS
     Indication: Product used for unknown indication
     Route: 048
  7. NARDIL [Interacting]
     Active Substance: PHENELZINE SULFATE
     Indication: Depression
     Route: 048
     Dates: start: 20240223, end: 20240302
  8. NARDIL [Interacting]
     Active Substance: PHENELZINE SULFATE
     Indication: Depression
     Route: 048
     Dates: start: 20240214, end: 20240216
  9. NARDIL [Interacting]
     Active Substance: PHENELZINE SULFATE
     Indication: Depression
     Route: 048
     Dates: start: 20240217, end: 20240222
  10. NARDIL [Interacting]
     Active Substance: PHENELZINE SULFATE
     Indication: Depression
     Route: 048
     Dates: start: 20240303, end: 20240311

REACTIONS (5)
  - Balance disorder [Recovered/Resolved]
  - Disturbance in attention [Recovered/Resolved]
  - Drug interaction [Recovered/Resolved]
  - Dysarthria [Recovered/Resolved]
  - Cognitive disorder [Recovering/Resolving]

NARRATIVE: CASE EVENT DATE: 20240214
